FAERS Safety Report 24711548 (Version 1)
Quarter: 2024Q4

REPORT INFORMATION
  Report Type: Spontaneous
  Country: US (occurrence: US)
  Receive Date: 20241209
  Receipt Date: 20241209
  Transmission Date: 20250114
  Serious: No
  Sender: NOBELPHARMA AMERICA, LLC
  Company Number: US-Nobelpharma America, LLC-NPA-2024-02046

PATIENT
  Age: 10 Year
  Sex: Female
  Weight: 38.9 kg

DRUGS (3)
  1. HYFTOR [Suspect]
     Active Substance: SIROLIMUS
     Indication: Tuberous sclerosis complex
     Route: 061
     Dates: start: 20240607, end: 20241105
  2. AFINITOR DISPERZ [Concomitant]
     Active Substance: EVEROLIMUS
     Dates: start: 20230128
  3. MIRALAX 3350 NF [Concomitant]

REACTIONS (1)
  - Application site pain [Recovering/Resolving]

NARRATIVE: CASE EVENT DATE: 20241030
